FAERS Safety Report 9916403 (Version 1)
Quarter: 2014Q1

REPORT INFORMATION
  Report Type: Spontaneous
  Country: GB (occurrence: GB)
  Receive Date: 20140221
  Receipt Date: 20140221
  Transmission Date: 20141002
  Serious: Yes (Other)
  Sender: FDA-Public Use
  Company Number: GB-SA-2014SA017484

PATIENT
  Age: 26 Year
  Sex: Female
  Weight: 89.81 kg

DRUGS (8)
  1. LANTUS [Suspect]
     Indication: TYPE 1 DIABETES MELLITUS
     Dosage: INCREASED FROM 15 UNITS
     Route: 051
     Dates: start: 201401, end: 201401
  2. LANTUS [Suspect]
     Indication: TYPE 1 DIABETES MELLITUS
     Route: 051
     Dates: start: 201401, end: 201401
  3. LANTUS [Suspect]
     Indication: TYPE 1 DIABETES MELLITUS
     Route: 051
     Dates: start: 201401, end: 201401
  4. LANTUS [Suspect]
     Indication: TYPE 1 DIABETES MELLITUS
     Route: 051
     Dates: start: 20140120
  5. NOVORAPID [Concomitant]
  6. NOVOMIX [Concomitant]
  7. DAKTARIN [Concomitant]
  8. FLUCLOXACILLIN [Concomitant]

REACTIONS (3)
  - Pruritus [Not Recovered/Not Resolved]
  - Burning sensation [Not Recovered/Not Resolved]
  - Pain [Not Recovered/Not Resolved]
